FAERS Safety Report 8367174-1 (Version None)
Quarter: 2012Q2

REPORT INFORMATION
  Report Type: 
  Country: None (occurrence: None)
  Receive Date: 20120517
  Receipt Date: 20120509
  Transmission Date: 20120825
  Serious: Yes (Hospitalization)
  Sender: FDA-Public Use
  Company Number: FR-ASTRAZENECA-2012SE22395

PATIENT
  Age: 12664 Day
  Sex: Female

DRUGS (15)
  1. ZOLOFT [Interacting]
     Indication: DEPRESSION
     Route: 048
     Dates: start: 20120104
  2. LOXAPINE HCL [Interacting]
     Indication: PSYCHOTIC DISORDER
     Route: 048
  3. MIRTAZAPINE [Concomitant]
     Indication: DEPRESSION
     Route: 048
  4. LITHIUM CARBONATE [Concomitant]
     Route: 048
  5. QUETIAPINE FUMARATE [Suspect]
     Indication: BIPOLAR DISORDER
     Route: 048
     Dates: start: 20111031, end: 20120103
  6. QUETIAPINE FUMARATE [Interacting]
     Route: 048
     Dates: start: 20120112
  7. LEVOTHYROXINE SODIUM [Concomitant]
     Indication: THYROID DISORDER
     Route: 048
  8. MIRTAZAPINE [Concomitant]
     Route: 048
  9. PRAMIPEXOLE DIHYDROCHLORIDE [Concomitant]
     Route: 048
     Dates: start: 20120101
  10. ZOLOFT [Interacting]
     Route: 048
     Dates: end: 20120227
  11. VALIUM [Concomitant]
     Route: 048
  12. TEMESTA [Concomitant]
     Route: 048
  13. QUETIAPINE FUMARATE [Interacting]
     Route: 048
     Dates: start: 20120104, end: 20120111
  14. LOXAPINE HCL [Interacting]
     Route: 048
     Dates: end: 20120227
  15. GLUCOPHAGE [Concomitant]
     Indication: HYPERGLYCAEMIA
     Route: 048

REACTIONS (3)
  - URINARY RETENTION [None]
  - DRUG INTERACTION [None]
  - SUICIDAL IDEATION [None]
